FAERS Safety Report 24893929 (Version 1)
Quarter: 2025Q1

REPORT INFORMATION
  Report Type: Spontaneous
  Country: US (occurrence: US)
  Receive Date: 20250128
  Receipt Date: 20250128
  Transmission Date: 20250409
  Serious: Yes (Hospitalization)
  Sender: DR REDDYS
  Company Number: US-DRL-USA-USA/2025/01/001271

PATIENT
  Age: 40 Year

DRUGS (6)
  1. CLOPIDOGREL [Suspect]
     Active Substance: CLOPIDOGREL BISULFATE
     Indication: Antiplatelet therapy
  2. HEPARIN [Suspect]
     Active Substance: HEPARIN SODIUM
     Indication: Peripheral ischaemia
     Route: 041
  3. ASPIRIN [Concomitant]
     Active Substance: ASPIRIN
     Indication: Arterial thrombosis
  4. APIXABAN [Concomitant]
     Active Substance: APIXABAN
     Indication: Arterial thrombosis
  5. RIVAROXABAN [Concomitant]
     Active Substance: RIVAROXABAN
     Indication: Peripheral ischaemia
  6. WARFARIN [Concomitant]
     Active Substance: WARFARIN
     Indication: Peripheral ischaemia

REACTIONS (1)
  - Drug ineffective [Unknown]
